FAERS Safety Report 6183160-4 (Version None)
Quarter: 2009Q2

REPORT INFORMATION
  Report Type: 
  Country: None (occurrence: None)
  Receive Date: 20090506
  Receipt Date: 20090424
  Transmission Date: 20091009
  Serious: Yes (Hospitalization)
  Sender: FDA-Public Use
  Company Number: GB-000215

PATIENT
  Sex: Female

DRUGS (1)
  1. DESMOPRESSIN ACETATE [Suspect]
     Indication: DIABETES INSIPIDUS

REACTIONS (5)
  - CONVULSION [None]
  - DEHYDRATION [None]
  - DISORIENTATION [None]
  - INCORRECT STORAGE OF DRUG [None]
  - OROPHARYNGEAL PAIN [None]
